FAERS Safety Report 8998937 (Version 1)
Quarter: 2013Q1

REPORT INFORMATION
  Report Type: Spontaneous
  Country: US (occurrence: US)
  Receive Date: 20130103
  Receipt Date: 20130103
  Transmission Date: 20140127
  Serious: Yes (Hospitalization, Other)
  Sender: FDA-Public Use
  Company Number: US-ASTELLAS-2012US011708

PATIENT
  Age: 54 None
  Sex: Male

DRUGS (1)
  1. PROGRAF [Suspect]
     Indication: LIVER TRANSPLANT
     Dosage: 2 MG IN THE MORNING AND 3 MG IN THE EVENING
     Route: 048

REACTIONS (4)
  - Product packaging quantity issue [Unknown]
  - Fall [Unknown]
  - Treatment noncompliance [Unknown]
  - Loss of consciousness [Unknown]
